FAERS Safety Report 16791591 (Version 1)
Quarter: 2019Q3

REPORT INFORMATION
  Report Type: Spontaneous
  Country: US (occurrence: US)
  Receive Date: 20190910
  Receipt Date: 20190910
  Transmission Date: 20191005
  Serious: Yes (Hospitalization, Other)
  Sender: FDA-Public Use
  Company Number: US-AMGEN-USASP2019146493

PATIENT
  Age: 25 Year
  Sex: Female

DRUGS (8)
  1. BORTEZOMIB. [Concomitant]
     Active Substance: BORTEZOMIB
     Indication: EXTRAVASCULAR HAEMOLYSIS
  2. EPOETIN ALFA [Suspect]
     Active Substance: ERYTHROPOIETIN
     Indication: AUTOIMMUNE HAEMOLYTIC ANAEMIA
     Dosage: UNK
     Route: 065
  3. BORTEZOMIB. [Concomitant]
     Active Substance: BORTEZOMIB
     Indication: AUTOIMMUNE HAEMOLYTIC ANAEMIA
  4. EPOETIN ALFA [Suspect]
     Active Substance: ERYTHROPOIETIN
     Indication: EXTRAVASCULAR HAEMOLYSIS
  5. IMMUNOGLOBULINS NOS [Concomitant]
     Active Substance: IMMUNE GLOBULIN NOS
     Indication: EXTRAVASCULAR HAEMOLYSIS
  6. FOLIC ACID. [Concomitant]
     Active Substance: FOLIC ACID
     Indication: AUTOIMMUNE HAEMOLYTIC ANAEMIA
     Dosage: UNK
  7. IMMUNOGLOBULINS NOS [Concomitant]
     Active Substance: IMMUNE GLOBULIN NOS
     Indication: AUTOIMMUNE HAEMOLYTIC ANAEMIA
     Dosage: UNK
     Route: 042
  8. FOLIC ACID. [Concomitant]
     Active Substance: FOLIC ACID
     Indication: EXTRAVASCULAR HAEMOLYSIS

REACTIONS (4)
  - Splenomegaly [Recovering/Resolving]
  - Off label use [Unknown]
  - Hyperbilirubinaemia [Recovering/Resolving]
  - Lymphadenopathy [Recovering/Resolving]
